FAERS Safety Report 8189499-5 (Version None)
Quarter: 2012Q1

REPORT INFORMATION
  Report Type: 
  Country: None (occurrence: None)
  Receive Date: 20120307
  Receipt Date: 20120229
  Transmission Date: 20120608
  Serious: No
  Sender: FDA-Public Use
  Company Number: US-PFIZER INC-2012055441

PATIENT
  Sex: Male

DRUGS (3)
  1. COSOPT [Suspect]
     Dosage: 1 GTT TO BOTH EYES IN AM AND PM
     Route: 047
     Dates: start: 20111001
  2. XALATAN [Suspect]
     Dosage: 1 GTT TO BOTH EYES, AT NIGHT
     Route: 047
     Dates: start: 20111001
  3. ALPHAGAN P [Suspect]
     Dosage: 1 GTT TO BOTH EYES, 2X/DAY
     Route: 047
     Dates: start: 20111001

REACTIONS (1)
  - OCULAR HYPERAEMIA [None]
